FAERS Safety Report 10686263 (Version 2)
Quarter: 2014Q4

REPORT INFORMATION
  Report Type: Spontaneous
  Country: GB (occurrence: GB)
  Receive Date: 20141231
  Receipt Date: 20141231
  Transmission Date: 20150529
  Serious: Yes (Death, Hospitalization, Other)
  Sender: FDA-Public Use
  Company Number: GB-CELGENE-167-21880-11061377

PATIENT

DRUGS (1)
  1. REVLIMID [Suspect]
     Active Substance: LENALIDOMIDE
     Indication: PLASMA CELL MYELOMA
     Route: 048
     Dates: start: 20090601, end: 20101231

REACTIONS (10)
  - Acute kidney injury [Fatal]
  - Embolism venous [Unknown]
  - Neuropathy peripheral [Unknown]
  - Renal impairment [Unknown]
  - Neutropenia [Unknown]
  - Thrombocytopenia [Unknown]
  - Neutropenic sepsis [Fatal]
  - Infection [Unknown]
  - Plasma cell myeloma [Fatal]
  - Anaemia [Unknown]
